FAERS Safety Report 11177161 (Version 3)
Quarter: 2015Q3

REPORT INFORMATION
  Report Type: Spontaneous
  Country: US (occurrence: US)
  Receive Date: 20150610
  Receipt Date: 20150813
  Transmission Date: 20151125
  Serious: No
  Sender: FDA-Public Use
  Company Number: US-PFIZER INC-2015190044

PATIENT
  Age: 41 Year
  Sex: Male

DRUGS (20)
  1. RHINOCORT AQUA [Concomitant]
     Active Substance: BUDESONIDE
     Dosage: 2 SPRAYS INTO EACH NOSTRIL ONCE DAILY
     Route: 045
  2. COENZYME Q10 [Concomitant]
     Active Substance: UBIDECARENONE
     Dosage: 100 MG, 1X/DAY
     Route: 048
  3. DRISDOL [Concomitant]
     Active Substance: ERGOCALCIFEROL
     Dosage: 5000 IU, WEEKLY (TAKE 1 CAP BY MOUTH EVERY 7 DAYS)
     Route: 048
  4. LYRICA [Suspect]
     Active Substance: PREGABALIN
     Dosage: 300 MG, 2X/DAY
     Route: 048
     Dates: start: 20150422
  5. CLEOCIN T [Suspect]
     Active Substance: CLINDAMYCIN PHOSPHATE
     Dosage: UNK, 2X/DAY
     Route: 061
  6. ALPHA LIPOIC ACID- VITAMIN E [Concomitant]
     Dosage: 1 DF, 2X/DAY
     Route: 048
  7. MIRALAX [Concomitant]
     Active Substance: POLYETHYLENE GLYCOL 3350
     Dosage: 1 SCOOP WITH 8 OUNCES OF WATER 1-2 TIMES DAILY AS NEEDED
  8. POTASSIUM GLUCONATE [Concomitant]
     Active Substance: POTASSIUM GLUCONATE
     Dosage: 2 MEQ, 1X/DAY
     Route: 048
  9. CIALIS [Concomitant]
     Active Substance: TADALAFIL
     Dosage: 5 MG, ONCE DAILY AS NEEDED
     Route: 048
  10. TOCOPHERYL ACETATE [Concomitant]
     Active Substance: .ALPHA.-TOCOPHEROL ACETATE
     Dosage: 400 IU, 1X/DAY
     Route: 048
  11. VIAGRA [Suspect]
     Active Substance: SILDENAFIL CITRATE
     Dosage: 100 MG, ONCE AS NEEDED
     Route: 048
  12. VITAMIN C [Concomitant]
     Active Substance: ASCORBIC ACID
     Dosage: 100 MG, 1X/DAY
     Route: 048
  13. GLUCOPHAGE XR [Suspect]
     Active Substance: METFORMIN HYDROCHLORIDE
     Dosage: 500 MG, 1 TAB NIGHTLY
  14. GLUTAMINE [Concomitant]
     Active Substance: GLUTAMINE
     Dosage: 500 MG, 1X/DAY
     Route: 048
  15. CYANOCOBALAMIN. [Concomitant]
     Active Substance: CYANOCOBALAMIN
     Dosage: 500 ?G, 1X/DAY
     Route: 048
  16. LIDODERM [Concomitant]
     Active Substance: LIDOCAINE
     Dosage: 1 PATCH TO SKIN ONCE DAILY
     Route: 062
  17. SENNA [Concomitant]
     Active Substance: SENNA LEAF\SENNOSIDES\SENNOSIDES A AND B
     Dosage: SEENA 8.6 MG- DOCUSATE 50MG, TAKE 4 TABS 2 TIMES DAILY
     Route: 048
  18. XYLOCAINE [Concomitant]
     Active Substance: LIDOCAINE HYDROCHLORIDE
     Dosage: APPLY TO AFFECTED AREA TWICE DAILY PRN
  19. ONE A DAY PLUS IRON [Concomitant]
     Dosage: 1 DF, 1X/DAY
     Route: 048
  20. TOPAMAX [Concomitant]
     Active Substance: TOPIRAMATE
     Dosage: UNK, 2X/DAY (50 MG TABLET, 1 IN AM AND 2 IN EVENING)

REACTIONS (3)
  - Insomnia [Unknown]
  - Proctitis [Unknown]
  - Pain [Unknown]
